FAERS Safety Report 25630815 (Version 1)
Quarter: 2025Q3

REPORT INFORMATION
  Report Type: Spontaneous
  Country: CA (occurrence: CA)
  Receive Date: 20250801
  Receipt Date: 20250801
  Transmission Date: 20251020
  Serious: Yes (Other)
  Sender: GRIFOLS
  Company Number: CA-IGSA-BIG0033316

PATIENT
  Age: 63 Year
  Sex: Male
  Weight: 84 kg

DRUGS (4)
  1. GAMUNEX [Suspect]
     Active Substance: HUMAN IMMUNOGLOBULIN G
     Indication: Multifocal motor neuropathy
     Route: 042
     Dates: start: 20250224, end: 20250224
  2. GAMUNEX [Suspect]
     Active Substance: HUMAN IMMUNOGLOBULIN G
     Indication: Product use in unapproved indication
  3. IGIVNEX [Suspect]
     Active Substance: HUMAN IMMUNOGLOBULIN G
     Indication: Multifocal motor neuropathy
     Route: 042
     Dates: start: 20250224, end: 20250224
  4. IGIVNEX [Suspect]
     Active Substance: HUMAN IMMUNOGLOBULIN G
     Indication: Product use in unapproved indication

REACTIONS (5)
  - Pruritus [Recovered/Resolved]
  - Chest pain [Recovered/Resolved]
  - Vomiting [Recovered/Resolved]
  - Tinnitus [Recovered/Resolved]
  - Hypersensitivity [Recovered/Resolved]

NARRATIVE: CASE EVENT DATE: 20250224
